FAERS Safety Report 16741425 (Version 1)
Quarter: 2019Q4

REPORT INFORMATION
  Report Type: Spontaneous
  Country: US (occurrence: US)
  Receive Date: 20190826
  Receipt Date: 20190826
  Transmission Date: 20200122
  Serious: No
  Sender: FDA-Public Use
  Company Number: None

PATIENT
  Age: 68 Year
  Sex: Female
  Weight: 51.75 kg

DRUGS (2)
  1. LISINOPRIL. [Concomitant]
     Active Substance: LISINOPRIL
  2. MOMETASONE [Suspect]
     Active Substance: MOMETASONE
     Indication: EAR INFECTION
     Dosage: ?          QUANTITY:1 DROP(S);?
     Route: 061
     Dates: start: 20190824, end: 20190826

REACTIONS (1)
  - Dizziness [None]

NARRATIVE: CASE EVENT DATE: 20190826
